FAERS Safety Report 5094030-7 (Version None)
Quarter: 2006Q3

REPORT INFORMATION
  Report Type: 
  Country: None (occurrence: None)
  Receive Date: 20060728
  Receipt Date: 20060515
  Transmission Date: 20061208
  Serious: No
  Sender: FDA-Public Use
  Company Number: 253414

PATIENT
  Age: 74 Year
  Sex: Male

DRUGS (7)
  1. LEVEMIR [Suspect]
     Indication: DIABETES MELLITUS INSULIN-DEPENDENT
     Dosage: 17 IU, QD, SUBCUTANEOUS
     Route: 058
     Dates: start: 20060401
  2. ROSEL [Concomitant]
  3. LISINOPRIL [Concomitant]
  4. GLIPIZIDE [Concomitant]
  5. SIMVASTATIN-MEPHA (SIMVASTATIN) [Concomitant]
  6. ATENOLOL [Concomitant]
  7. METFORMIN HCL [Concomitant]

REACTIONS (1)
  - INJECTION SITE BRUISING [None]
